FAERS Safety Report 5494546-5 (Version None)
Quarter: 2007Q4

REPORT INFORMATION
  Report Type: 
  Country: None (occurrence: None)
  Receive Date: 20071022
  Receipt Date: 20071012
  Transmission Date: 20080405
  Serious: Yes (Hospitalization, Other)
  Sender: FDA-Public Use
  Company Number: 2007SP013110

PATIENT
  Age: 77 Year
  Sex: Male
  Weight: 86.637 kg

DRUGS (7)
  1. NITRO-DUR [Suspect]
     Indication: DRUG USE FOR UNKNOWN INDICATION
     Dosage: 0.4 MG/QH; TDER; 0.6 MG; QH; TDER; 0.4 MG; QH; TDER
     Dates: start: 20061201
  2. NITRO-DUR [Suspect]
     Indication: DRUG USE FOR UNKNOWN INDICATION
     Dosage: 0.4 MG/QH; TDER; 0.6 MG; QH; TDER; 0.4 MG; QH; TDER
     Dates: start: 20070101
  3. NITRO-DUR [Suspect]
     Indication: DRUG USE FOR UNKNOWN INDICATION
     Dosage: 0.4 MG/QH; TDER; 0.6 MG; QH; TDER; 0.4 MG; QH; TDER
     Dates: start: 20070101
  4. RANEXA (CON.) [Concomitant]
  5. IMDUR (CON.) [Concomitant]
  6. PLAVIS (CON.) [Concomitant]
  7. NITROGLYCERIN (CON.) [Concomitant]

REACTIONS (1)
  - PHARMACEUTICAL PRODUCT COMPLAINT [None]
